FAERS Safety Report 11140847 (Version 1)
Quarter: 2015Q2

REPORT INFORMATION
  Report Type: Spontaneous
  Country: US (occurrence: None)
  Receive Date: 20150526
  Receipt Date: 20150526
  Transmission Date: 20150821
  Serious: Yes (Hospitalization)
  Sender: FDA-Public Use
  Company Number: None

PATIENT
  Age: 84 Year
  Sex: Male
  Weight: 66.5 kg

DRUGS (1)
  1. WARFARIN [Suspect]
     Active Substance: WARFARIN
     Indication: ATRIAL FIBRILLATION
     Route: 048
     Dates: start: 20150130, end: 20150408

REACTIONS (4)
  - Faeces discoloured [None]
  - Gastrointestinal haemorrhage [None]
  - Anaemia [None]
  - International normalised ratio abnormal [None]

NARRATIVE: CASE EVENT DATE: 20150408
